FAERS Safety Report 8936687 (Version 2)
Quarter: 2013Q2

REPORT INFORMATION
  Report Type: Spontaneous
  Country: JP (occurrence: JP)
  Receive Date: 20121130
  Receipt Date: 20130402
  Transmission Date: 20140414
  Serious: Yes (Death, Other)
  Sender: FDA-Public Use
  Company Number: JP-ROCHE-1160052

PATIENT
  Age: 12 Year
  Sex: Female
  Weight: 54 kg

DRUGS (9)
  1. AVASTIN [Suspect]
     Indication: COLON CANCER METASTATIC
     Dosage: DOSAGE IS UNCERTAIN. 13 COURSES
     Route: 041
  2. ELPLAT [Suspect]
     Indication: COLON CANCER METASTATIC
     Dosage: DOSAGE IS UNCERTAIN. 13 COURSES
     Route: 041
  3. IRINOTECAN HYDROCHLORIDE [Suspect]
     Indication: COLON CANCER METASTATIC
     Dosage: DRUG REPORTED AS : IRINOTECAN HYDROCHLORIDE HYDRATE, DOSAGE IS UNCERTAIN
     Route: 041
  4. LEVOFOLINATE [Concomitant]
     Indication: COLON CANCER METASTATIC
     Dosage: UNCERTAIN DOSAGE AND 13 COOL
     Route: 041
  5. LEVOFOLINATE [Concomitant]
     Indication: COLON CANCER METASTATIC
     Dosage: DOSAGE IS UNCERTAIN.
     Route: 041
  6. 5-FU [Concomitant]
     Indication: COLON CANCER METASTATIC
     Dosage: UNCERTAIN DOSAGE AND 13 COOL
     Route: 040
  7. 5-FU [Concomitant]
     Indication: COLON CANCER METASTATIC
     Dosage: UNCERTAIN DOSAGE AND 13 COOL
     Route: 041
  8. 5-FU [Concomitant]
     Indication: COLON CANCER METASTATIC
     Dosage: DOSAGE IS UNCERTAIN.
     Route: 040
  9. 5-FU [Concomitant]
     Indication: COLON CANCER METASTATIC
     Dosage: DOSAGE IS UNCERTAIN.
     Route: 041

REACTIONS (8)
  - Death [Fatal]
  - Ascites [Unknown]
  - Metastases to peritoneum [Unknown]
  - Malignant ascites [Unknown]
  - Abdominal pain [Unknown]
  - Vomiting [Unknown]
  - Diarrhoea [Unknown]
  - Hypophagia [Unknown]
